FAERS Safety Report 8228961 (Version 4)
Quarter: 2013Q3

REPORT INFORMATION
  Report Type: Report from Study
  Country: DE (occurrence: DE)
  Receive Date: 20111104
  Receipt Date: 20130813
  Transmission Date: 20140515
  Serious: Yes (Other)
  Sender: FDA-Public Use
  Company Number: DE-UCBSA-044060

PATIENT
  Sex: Female

DRUGS (7)
  1. CERTOLIZUMAB PEGOL [Suspect]
     Indication: RHEUMATOID ARTHRITIS
     Dosage: UNKNOWN DOSE
     Route: 058
     Dates: start: 20110815, end: 20110912
  2. PREDNISOLONE [Concomitant]
     Indication: RHEUMATOID ARTHRITIS
     Dosage: 10-4 MG ONCE DAILY
     Dates: start: 20101117, end: 20120326
  3. PREDNISOLONE [Concomitant]
     Indication: RHEUMATOID ARTHRITIS
     Dosage: 5-40 MG
     Dates: start: 20120327
  4. CALCIVIT D FORTE [Concomitant]
     Indication: STEROID THERAPY
     Dates: start: 20101201
  5. ISOZID COMP [Concomitant]
     Indication: ANTIBIOTIC PROPHYLAXIS
     Dates: start: 20110321
  6. ASS [Concomitant]
     Indication: HAEMODILUTION
  7. DICLOFENAC [Concomitant]
     Indication: RHEUMATOID ARTHRITIS
     Dates: end: 20110901

REACTIONS (1)
  - Hypertension [Recovered/Resolved]
